FAERS Safety Report 18871382 (Version 1)
Quarter: 2021Q1

REPORT INFORMATION
  Report Type: Spontaneous
  Country: US (occurrence: US)
  Receive Date: 20210210
  Receipt Date: 20210210
  Transmission Date: 20210420
  Serious: Yes (Life-Threatening, Hospitalization)
  Sender: FDA-Public Use
  Company Number: US-EMCURE PHARMACEUTICALS LTD-2021-EPL-000407

PATIENT
  Age: 2 Month
  Sex: Male

DRUGS (4)
  1. ACYCLOVIR. [Suspect]
     Active Substance: ACYCLOVIR
     Indication: EVIDENCE BASED TREATMENT
     Dosage: UNK
  2. ACETAMINOPHEN. [Suspect]
     Active Substance: ACETAMINOPHEN
     Indication: EVIDENCE BASED TREATMENT
     Dosage: UNK
  3. VANCOMYCIN HYDROCHLORIDE. [Suspect]
     Active Substance: VANCOMYCIN HYDROCHLORIDE
     Indication: EVIDENCE BASED TREATMENT
     Dosage: UNK
  4. CEFTRIAXONE. [Suspect]
     Active Substance: CEFTRIAXONE
     Indication: EVIDENCE BASED TREATMENT
     Dosage: UNK

REACTIONS (3)
  - Stevens-Johnson syndrome [Recovering/Resolving]
  - Acute respiratory failure [Unknown]
  - Toxic epidermal necrolysis [Recovering/Resolving]
